FAERS Safety Report 21454894 (Version 2)
Quarter: 2023Q2

REPORT INFORMATION
  Report Type: Spontaneous
  Country: PT (occurrence: None)
  Receive Date: 20221014
  Receipt Date: 20230512
  Transmission Date: 20230722
  Serious: Yes (Other)
  Sender: FDA-Public Use
  Company Number: PT-EMA-DD-20221004-116353-153010

PATIENT
  Age: 62 Year
  Sex: Female

DRUGS (8)
  1. ENTACAPONE [Suspect]
     Active Substance: ENTACAPONE
     Indication: Parkinson^s disease
  2. ROPINIROLE [Suspect]
     Active Substance: ROPINIROLE
     Indication: Parkinson^s disease
     Dosage: (2 TAB/DAY)
  3. CARBIDOPA\LEVODOPA [Suspect]
     Active Substance: CARBIDOPA\LEVODOPA
     Indication: Parkinson^s disease
     Dosage: 31.25 MG / 125 MG
  4. CARBIDOPA\LEVODOPA [Suspect]
     Active Substance: CARBIDOPA\LEVODOPA
     Dosage: 25 MG / 250 MG
  5. CARBIDOPA\LEVODOPA [Suspect]
     Active Substance: CARBIDOPA\LEVODOPA
     Dosage: 25 MG / 105 MG
  6. QUETIAPINE [Suspect]
     Active Substance: QUETIAPINE
     Indication: Major depression
  7. QUETIAPINE [Suspect]
     Active Substance: QUETIAPINE
  8. SERTRALINE [Suspect]
     Active Substance: SERTRALINE HYDROCHLORIDE
     Indication: Depression
     Dosage: STRENGTH: 150 MG

REACTIONS (8)
  - Hypomania [Recovered/Resolved]
  - Aggression [Recovered/Resolved]
  - Logorrhoea [Recovered/Resolved]
  - Psychomotor hyperactivity [Recovered/Resolved]
  - Behaviour disorder [Recovered/Resolved]
  - Irritability [Recovered/Resolved]
  - Energy increased [Recovered/Resolved]
  - Insomnia [Recovered/Resolved]
